FAERS Safety Report 6056488-6 (Version None)
Quarter: 2009Q1

REPORT INFORMATION
  Report Type: 
  Country: None (occurrence: None)
  Receive Date: 20090129
  Receipt Date: 20090121
  Transmission Date: 20090719
  Serious: Yes (Other)
  Sender: FDA-Public Use
  Company Number: PHBS2007JP17890

PATIENT
  Age: 39 Year
  Sex: Female

DRUGS (7)
  1. TEGRETOL [Suspect]
     Indication: TEMPORAL LOBE EPILEPSY
     Dosage: 900 MG/DAY
     Route: 048
  2. TEGRETOL [Suspect]
     Dosage: 100 MG/DAY
     Route: 048
  3. PHENYTOIN [Concomitant]
     Indication: TEMPORAL LOBE EPILEPSY
     Dosage: 300 MG/D
     Route: 048
  4. PHENOBARBITAL TAB [Concomitant]
     Indication: TEMPORAL LOBE EPILEPSY
     Dosage: 60 MG/D
     Route: 048
  5. CLOBAZAM [Concomitant]
     Indication: TEMPORAL LOBE EPILEPSY
     Dosage: 40 MG/D
     Route: 048
  6. CLOBAZAM [Concomitant]
     Dosage: 30 MG/D
     Route: 065
  7. ANTINEOPLASTIC AGENTS [Concomitant]
     Route: 065

REACTIONS (3)
  - BREAST CANCER [None]
  - CONVULSION [None]
  - METASTASIS [None]
